FAERS Safety Report 5601296-0 (Version None)
Quarter: 2008Q1

REPORT INFORMATION
  Report Type: 
  Country: None (occurrence: None)
  Receive Date: 20080124
  Receipt Date: 20080123
  Transmission Date: 20080703
  Serious: Yes (Other)
  Sender: FDA-Public Use
  Company Number: B0502113A

PATIENT
  Age: 10 Year
  Sex: Male
  Weight: 27.5 kg

DRUGS (4)
  1. RELENZA [Suspect]
     Indication: INFLUENZA
     Dosage: 10MG TWICE PER DAY
     Route: 055
     Dates: start: 20071223, end: 20071225
  2. HUSCODE [Concomitant]
     Indication: INFLUENZA
     Route: 048
     Dates: start: 20071223, end: 20071225
  3. MUCODYNE [Concomitant]
     Indication: INFLUENZA
     Route: 048
     Dates: start: 20071223, end: 20071225
  4. CALONAL [Concomitant]
     Indication: INFLUENZA
     Route: 048
     Dates: end: 20071225

REACTIONS (2)
  - ABNORMAL BEHAVIOUR [None]
  - DELIRIUM [None]
